FAERS Safety Report 6940601-X (Version None)
Quarter: 2010Q3

REPORT INFORMATION
  Report Type: 
  Country: None (occurrence: None)
  Receive Date: 20100825
  Receipt Date: 20100811
  Transmission Date: 20110219
  Serious: Yes (Other)
  Sender: FDA-Public Use
  Company Number: PHHY2010US53013

PATIENT
  Age: 12 Year
  Sex: Male

DRUGS (9)
  1. RITALIN LA [Suspect]
     Indication: ATTENTION DEFICIT/HYPERACTIVITY DISORDER
     Dosage: 20 MG PER DAY
  2. RITALIN LA [Suspect]
     Dosage: 30 MG PER DAY
  3. FOCALIN [Suspect]
     Indication: ATTENTION DEFICIT/HYPERACTIVITY DISORDER
     Dosage: 2.5 MG PER DAY
  4. METADATE CD [Suspect]
     Indication: ATTENTION DEFICIT/HYPERACTIVITY DISORDER
  5. METADATE ER [Suspect]
     Indication: ATTENTION DEFICIT/HYPERACTIVITY DISORDER
  6. TRILEPTAL [Concomitant]
     Indication: BIPOLAR DISORDER
     Dosage: 300 MG, BID
  7. ABILIFY [Concomitant]
     Indication: BIPOLAR DISORDER
     Dosage: 5 MG PER DAY
  8. LAMICTAL [Concomitant]
     Indication: BIPOLAR DISORDER
     Dosage: 25 MG PER DAY
  9. SEROQUEL [Concomitant]
     Indication: BIPOLAR DISORDER
     Dosage: 50 MG PER DAY

REACTIONS (8)
  - ANGIOPATHY [None]
  - COMPLEMENT FACTOR C4 DECREASED [None]
  - ERYTHEMA [None]
  - MUSCULOSKELETAL PAIN [None]
  - PAIN IN EXTREMITY [None]
  - RAYNAUD'S PHENOMENON [None]
  - SKIN DISCOLOURATION [None]
  - TIC [None]
